FAERS Safety Report 9126844 (Version 1)
Quarter: 2013Q1

REPORT INFORMATION
  Report Type: Spontaneous
  Country: IT (occurrence: IT)
  Receive Date: 20130122
  Receipt Date: 20130122
  Transmission Date: 20140127
  Serious: Yes (Other)
  Sender: FDA-Public Use
  Company Number: IT-BRISTOL-MYERS SQUIBB COMPANY-17279662

PATIENT
  Sex: 0

DRUGS (1)
  1. ENTECAVIR [Suspect]

REACTIONS (1)
  - Autoimmune hepatitis [Unknown]
